FAERS Safety Report 21814720 (Version 1)
Quarter: 2023Q1

REPORT INFORMATION
  Report Type: Report from Study
  Country: US (occurrence: US)
  Receive Date: 20230104
  Receipt Date: 20230104
  Transmission Date: 20230418
  Serious: No
  Sender: FDA-Public Use
  Company Number: US-ABBVIE-4220203

PATIENT
  Sex: Male

DRUGS (1)
  1. RINVOQ [Suspect]
     Active Substance: UPADACITINIB
     Indication: Crohn^s disease
     Dosage: FORM STRENGTH: 15 MILLIGRAM? DOSE:45 MG ER TAB DAILY FOR 8 WEEKS THEN 15 MG ER TAB DAILY
     Route: 048
     Dates: start: 202211

REACTIONS (2)
  - Off label use [Unknown]
  - Ankylosing spondylitis [Unknown]
